FAERS Safety Report 14518831 (Version 2)
Quarter: 2018Q1

REPORT INFORMATION
  Report Type: Spontaneous
  Country: SG (occurrence: SG)
  Receive Date: 20180212
  Receipt Date: 20180322
  Transmission Date: 20180509
  Serious: Yes (Hospitalization)
  Sender: FDA-Public Use
  Company Number: SG-JNJFOC-20180214057

PATIENT
  Age: 76 Year
  Sex: Male

DRUGS (2)
  1. XARELTO [Suspect]
     Active Substance: RIVAROXABAN
     Indication: ATRIAL FIBRILLATION
     Dosage: OM
     Route: 048
     Dates: end: 20180131
  2. SOTALOL. [Concomitant]
     Active Substance: SOTALOL
     Route: 065

REACTIONS (1)
  - Ischaemic cerebral infarction [Recovering/Resolving]

NARRATIVE: CASE EVENT DATE: 20180204
